FAERS Safety Report 12763953 (Version 2)
Quarter: 2019Q4

REPORT INFORMATION
  Report Type: Spontaneous
  Country: JP (occurrence: JP)
  Receive Date: 20160920
  Receipt Date: 20191021
  Transmission Date: 20200122
  Serious: Yes (Hospitalization, Other)
  Sender: FDA-Public Use
  Company Number: JP-TEVA-2016-JP-002053J

PATIENT
  Age: 32 Year
  Sex: Female

DRUGS (6)
  1. DEZOLAM TABLET 1MG [Suspect]
     Active Substance: ETIZOLAM
     Indication: GENERALISED ANXIETY DISORDER
     Route: 065
  2. SERTRALINE HYDROCHLORIDE. [Suspect]
     Active Substance: SERTRALINE HYDROCHLORIDE
     Indication: GENERALISED ANXIETY DISORDER
     Route: 065
  3. SODIUM VALPROATE [Suspect]
     Active Substance: VALPROATE SODIUM
     Indication: GENERALISED ANXIETY DISORDER
     Route: 065
  4. RISPERIDONE TABLET 3MG ^TAIYO^ [Suspect]
     Active Substance: RISPERIDONE
     Indication: GENERALISED ANXIETY DISORDER
     Route: 065
  5. BROMAZEPAM [Suspect]
     Active Substance: BROMAZEPAM
     Indication: GENERALISED ANXIETY DISORDER
     Route: 065
  6. PAROXETINE TABLET 20MG ^TEVA^ [Suspect]
     Active Substance: PAROXETINE
     Indication: GENERALISED ANXIETY DISORDER
     Route: 065

REACTIONS (5)
  - Intentional self-injury [Unknown]
  - Maternal exposure during pregnancy [Unknown]
  - Mental disorder [Unknown]
  - Normal newborn [Unknown]
  - Anxiety disorder [Unknown]
